FAERS Safety Report 18050734 (Version 1)
Quarter: 2020Q3

REPORT INFORMATION
  Report Type: Report from Study
  Country: None (occurrence: US)
  Receive Date: 20200721
  Receipt Date: 20200721
  Transmission Date: 20201103
  Serious: Yes (Other)
  Sender: FDA-Public Use
  Company Number: US-ABBVIE-20K-163-3487680-00

PATIENT
  Sex: Male

DRUGS (1)
  1. HUMIRA [Suspect]
     Active Substance: ADALIMUMAB
     Indication: CROHN^S DISEASE
     Dosage: CF
     Route: 058

REACTIONS (5)
  - Skin cancer [Recovered/Resolved]
  - COVID-19 [Unknown]
  - Rectal haemorrhage [Recovering/Resolving]
  - Haemorrhoidal haemorrhage [Unknown]
  - Immunosuppression [Not Recovered/Not Resolved]
